FAERS Safety Report 6469534-2 (Version None)
Quarter: 2009Q4

REPORT INFORMATION
  Report Type: 
  Country: None (occurrence: None)
  Receive Date: 20091203
  Receipt Date: 20091123
  Transmission Date: 20100525
  Serious: Yes (Hospitalization)
  Sender: FDA-Public Use
  Company Number: FR-GENENTECH-292205

PATIENT
  Sex: Female
  Weight: 65 kg

DRUGS (3)
  1. RITUXIMAB [Suspect]
     Indication: B-CELL LYMPHOMA
     Dosage: 700 MG, UNK
     Route: 042
     Dates: start: 20080331
  2. FLUDARABINE [Concomitant]
     Indication: B-CELL LYMPHOMA
     Dosage: 150 MG, UNK
     Dates: start: 20080331
  3. CYCLOPHOSPHAMIDE [Concomitant]
     Indication: B-CELL LYMPHOMA
     Dosage: 1050 MG, UNK
     Dates: start: 20080331

REACTIONS (1)
  - PNEUMOCYSTIS JIROVECI PNEUMONIA [None]
